APPROVED DRUG PRODUCT: DOXYCYCLINE HYCLATE
Active Ingredient: DOXYCYCLINE HYCLATE
Strength: EQ 100MG BASE
Dosage Form/Route: CAPSULE;ORAL
Application: A209402 | Product #001 | TE Code: AB
Applicant: CHANGZHOU PHARMACEUTICAL FACTORY
Approved: Oct 7, 2019 | RLD: No | RS: No | Type: RX